FAERS Safety Report 7690745-2 (Version None)
Quarter: 2011Q3

REPORT INFORMATION
  Report Type: 
  Country: None (occurrence: None)
  Receive Date: 20110818
  Receipt Date: 20110810
  Transmission Date: 20111222
  Serious: Yes (Other)
  Sender: FDA-Public Use
  Company Number: US-ASTELLAS-2011US004938

PATIENT
  Age: 46 Year
  Sex: Female

DRUGS (3)
  1. PROGRAF [Suspect]
     Indication: LIVER TRANSPLANT
     Dosage: 2 MG, BID
     Route: 065
  2. VALGANCICLOVIR [Concomitant]
     Indication: LIVER TRANSPLANT
     Dosage: 450 MG, QOD
     Route: 065
  3. MYCOPHENOLATE MOFETIL [Suspect]
     Indication: LIVER TRANSPLANT
     Dosage: 750 MG, BID
     Route: 065

REACTIONS (2)
  - OESOPHAGEAL STENOSIS [None]
  - CYTOMEGALOVIRUS OESOPHAGITIS [None]
